FAERS Safety Report 18213673 (Version 1)
Quarter: 2020Q3

REPORT INFORMATION
  Report Type: Spontaneous
  Country: US (occurrence: US)
  Receive Date: 20200831
  Receipt Date: 20200831
  Transmission Date: 20201103
  Serious: Yes (Hospitalization)
  Sender: FDA-Public Use
  Company Number: None

PATIENT
  Age: 88 Year
  Sex: Female

DRUGS (2)
  1. IBRANCE [Suspect]
     Active Substance: PALBOCICLIB
     Indication: THROMBOCYTOPENIA
     Route: 048
     Dates: start: 20180601
  2. BOSULIF [Suspect]
     Active Substance: BOSUTINIB MONOHYDRATE
     Indication: BREAST CANCER FEMALE
     Dosage: ?          OTHER FREQUENCY:EVERY THIRD DAY;?
     Route: 048
     Dates: start: 20190831

REACTIONS (1)
  - Pulmonary oedema [None]

NARRATIVE: CASE EVENT DATE: 20200831
